FAERS Safety Report 23425732 (Version 1)
Quarter: 2024Q1

REPORT INFORMATION
  Report Type: Spontaneous
  Country: DE (occurrence: DE)
  Receive Date: 20240122
  Receipt Date: 20240122
  Transmission Date: 20240410
  Serious: Yes (Life-Threatening, Hospitalization, Other)
  Sender: FDA-Public Use
  Company Number: DE-BFARM-09001961

PATIENT
  Age: 66 Year
  Sex: Male
  Weight: 106 kg

DRUGS (12)
  1. BISOPROLOL [Suspect]
     Active Substance: BISOPROLOL\BISOPROLOL FUMARATE
     Indication: Hypertension
     Dosage: 10 MILLIGRAM, ONCE A DAY
     Route: 048
  2. BISOPROLOL [Suspect]
     Active Substance: BISOPROLOL\BISOPROLOL FUMARATE
     Dosage: 2.5 MILLIGRAM, TWO TIMES A DAY
     Route: 048
  3. DOXAZOSIN [Suspect]
     Active Substance: DOXAZOSIN MESYLATE
     Indication: Hypertension
     Dosage: 8 MG, UNK, REDUCED TO 2 MG ON 31-MAY-08
     Route: 048
  4. DOXAZOSIN [Suspect]
     Active Substance: DOXAZOSIN MESYLATE
     Dosage: 2 MILLIGRAM, ONCE A DAY
     Route: 048
  5. RAMIPRIL [Suspect]
     Active Substance: RAMIPRIL
     Indication: Product used for unknown indication
     Dosage: 10 MILLIGRAM (UNKNOWN INTERVAL)
     Route: 048
     Dates: start: 2000
  6. HYDROCHLOROTHIAZIDE [Suspect]
     Active Substance: HYDROCHLOROTHIAZIDE
     Indication: Hypertension
     Dosage: 25 MILLIGRAM, ONCE A DAY
     Route: 048
     Dates: start: 2003
  7. FELODIPINE [Suspect]
     Active Substance: FELODIPINE
     Indication: Hypertension
     Dosage: 10 MILLIGRAM, ONCE A DAY
     Route: 048
  8. RAMIPRIL [Suspect]
     Active Substance: RAMIPRIL
     Indication: Hypertension
     Dosage: 10 MG, UNK
     Route: 048
     Dates: start: 2000
  9. ISOSORBIDE DINITRATE [Suspect]
     Active Substance: ISOSORBIDE DINITRATE
     Indication: Coronary artery disease
     Dosage: 20 MG, UNK
     Route: 048
     Dates: start: 2003
  10. METFORMIN [Concomitant]
     Active Substance: METFORMIN HYDROCHLORIDE
     Indication: Type 2 diabetes mellitus
     Dosage: 1000 MG, UNK
     Route: 048
  11. ASPIRIN [Concomitant]
     Active Substance: ASPIRIN
     Indication: Coronary artery disease
     Dosage: 100 MILLIGRAM, ONCE A DAY
     Route: 048
     Dates: start: 2003
  12. SIMVASTATIN [Concomitant]
     Active Substance: SIMVASTATIN
     Indication: Hyperlipidaemia
     Dosage: 80 MG, UNK
     Route: 048
     Dates: start: 2003

REACTIONS (4)
  - Syncope [Recovered/Resolved]
  - Dehydration [Recovered/Resolved]
  - Hypotension [Recovered/Resolved]
  - Drug interaction [Unknown]

NARRATIVE: CASE EVENT DATE: 20080526
